FAERS Safety Report 10193409 (Version 1)
Quarter: 2014Q2

REPORT INFORMATION
  Report Type: Spontaneous
  Country: US (occurrence: US)
  Receive Date: 20140524
  Receipt Date: 20140524
  Transmission Date: 20141212
  Serious: No
  Sender: FDA-Public Use
  Company Number: US-SA-2013SA127934

PATIENT
  Age: 64 Year
  Sex: Female

DRUGS (2)
  1. SOLOSTAR [Suspect]
  2. LANTUS SOLOSTAR [Suspect]
     Route: 065

REACTIONS (6)
  - Injection site bruising [Unknown]
  - Weight increased [Unknown]
  - Abdominal distension [Unknown]
  - Blood glucose increased [Unknown]
  - Drug dose omission [Unknown]
  - Injection site pain [Unknown]
